FAERS Safety Report 5029861-2 (Version None)
Quarter: 2006Q2

REPORT INFORMATION
  Report Type: 
  Country: None (occurrence: None)
  Receive Date: 20060614
  Receipt Date: 20060605
  Transmission Date: 20061013
  Serious: Yes (Hospitalization)
  Sender: FDA-Public Use
  Company Number: 200612922BWH

PATIENT
  Age: 71 Year
  Sex: Male

DRUGS (10)
  1. NEXAVAR [Suspect]
     Indication: METASTATIC RENAL CELL CARCINOMA
     Dosage: SEE IMAGE
     Route: 048
     Dates: start: 20060212, end: 20060222
  2. NEXAVAR [Suspect]
     Indication: METASTATIC RENAL CELL CARCINOMA
     Dosage: SEE IMAGE
     Route: 048
     Dates: start: 20060322, end: 20060419
  3. MOTRIN [Concomitant]
  4. OXYCODONE HCL [Concomitant]
  5. AZITHROMAX [Concomitant]
  6. PRILOSEC [Concomitant]
  7. BACTRIM DS [Concomitant]
  8. COUMADIN [Concomitant]
  9. SENOKOT [SENNA ALEXANDRINA] [Concomitant]
  10. PREDNISONE [Concomitant]

REACTIONS (11)
  - ANAEMIA [None]
  - BRAIN MASS [None]
  - DEHYDRATION [None]
  - LYMPHADENOPATHY [None]
  - MALIGNANT NEOPLASM PROGRESSION [None]
  - METASTATIC RENAL CELL CARCINOMA [None]
  - MUCOSAL INFLAMMATION [None]
  - PNEUMONITIS [None]
  - PULMONARY EMBOLISM [None]
  - RASH GENERALISED [None]
  - RESPIRATORY DISTRESS [None]
